FAERS Safety Report 25192845 (Version 1)
Quarter: 2025Q2

REPORT INFORMATION
  Report Type: Spontaneous
  Country: US (occurrence: US)
  Receive Date: 20250414
  Receipt Date: 20250414
  Transmission Date: 20250717
  Serious: Yes (Hospitalization, Other)
  Sender: SANDOZ
  Company Number: US-SANDOZ-SDZ2025US022726

PATIENT
  Age: 53 Year
  Sex: Female

DRUGS (5)
  1. DOCETAXEL [Suspect]
     Active Substance: DOCETAXEL
     Indication: Breast cancer
     Route: 065
  2. ANASTROZOLE [Concomitant]
     Active Substance: ANASTROZOLE
     Indication: Product used for unknown indication
     Dosage: 1 MG, QD
     Route: 065
  3. PACLITAXEL [Concomitant]
     Active Substance: PACLITAXEL
     Indication: Product used for unknown indication
     Route: 065
  4. PERTUZUMAB [Concomitant]
     Active Substance: PERTUZUMAB
     Indication: Product used for unknown indication
     Route: 065
  5. TRASTUZUMAB [Concomitant]
     Active Substance: TRASTUZUMAB
     Indication: Product used for unknown indication
     Route: 065

REACTIONS (1)
  - Cystitis haemorrhagic [Unknown]
